FAERS Safety Report 8676289 (Version 3)
Quarter: 2013Q1

REPORT INFORMATION
  Report Type: Spontaneous
  Country: CO (occurrence: CO)
  Receive Date: 20120720
  Receipt Date: 20130221
  Transmission Date: 20140127
  Serious: Yes (Death, Life-Threatening, Other)
  Sender: FDA-Public Use
  Company Number: CO-ELI_LILLY_AND_COMPANY-CO201207006069

PATIENT
  Age: 77 Year
  Sex: Female

DRUGS (7)
  1. FORTEO [Suspect]
     Indication: OSTEOPOROSIS
     Dosage: 20 UG, QD
     Route: 058
     Dates: start: 201204
  2. CALCIUM + VITAMIN D [Concomitant]
  3. CALCIUM CARBONATE + VITAMIN D [Concomitant]
  4. TRAMADOL [Concomitant]
     Dosage: UNK
  5. ACETAMINOPHEN [Concomitant]
  6. RANITIDINE [Concomitant]
  7. THEOPHYLLINE [Concomitant]

REACTIONS (4)
  - Pulmonary fibrosis [Fatal]
  - Asphyxia [Not Recovered/Not Resolved]
  - Vomiting [Not Recovered/Not Resolved]
  - Nausea [Not Recovered/Not Resolved]
